FAERS Safety Report 4516749-6 (Version None)
Quarter: 2004Q4

REPORT INFORMATION
  Report Type: 
  Country: None (occurrence: None)
  Receive Date: 20041202
  Receipt Date: 20041122
  Transmission Date: 20050328
  Serious: Yes (Hospitalization)
  Sender: FDA-Public Use
  Company Number: JP-BRISTOL-MYERS SQUIBB COMPANY-12777876

PATIENT
  Age: 90 Year
  Sex: Female

DRUGS (4)
  1. GATIFLO TABS 100 MG [Suspect]
     Indication: INFECTION PROPHYLAXIS
     Dosage: TOOK 200 MG ON 08-NOV-2004, 400 MG ON 09-NOV-2004 + 10-NOV-2004
     Route: 048
     Dates: start: 20041108, end: 20041110
  2. NORVASC [Concomitant]
     Route: 048
  3. THEOLONG [Concomitant]
     Route: 048
  4. ONON [Concomitant]
     Route: 048

REACTIONS (3)
  - DEPRESSED LEVEL OF CONSCIOUSNESS [None]
  - HYPERHIDROSIS [None]
  - HYPOGLYCAEMIA [None]
